FAERS Safety Report 17962052 (Version 3)
Quarter: 2021Q2

REPORT INFORMATION
  Report Type: Spontaneous
  Country: US (occurrence: US)
  Receive Date: 20200630
  Receipt Date: 20210510
  Transmission Date: 20210717
  Serious: No
  Sender: FDA-Public Use
  Company Number: US-PFIZER INC-2020250504

PATIENT
  Age: 75 Year
  Sex: Female

DRUGS (1)
  1. XELJANZ [Suspect]
     Active Substance: TOFACITINIB CITRATE
     Dosage: UNK

REACTIONS (8)
  - Fatigue [Unknown]
  - Sensitivity to weather change [Unknown]
  - Aphasia [Unknown]
  - Toothache [Unknown]
  - Cough [Unknown]
  - Feeling abnormal [Unknown]
  - Joint swelling [Unknown]
  - Pain [Unknown]
